FAERS Safety Report 18393043 (Version 2)
Quarter: 2020Q4

REPORT INFORMATION
  Report Type: Report from Study
  Country: AT (occurrence: AT)
  Receive Date: 20201016
  Receipt Date: 20201214
  Transmission Date: 20210114
  Serious: Yes (Hospitalization)
  Sender: FDA-Public Use
  Company Number: AT-PFIZER INC-2020397724

PATIENT
  Age: 62 Year
  Sex: Female
  Weight: 80 kg

DRUGS (52)
  1. TRASTUZUMAB. [Suspect]
     Active Substance: TRASTUZUMAB
     Indication: HER2 POSITIVE BREAST CANCER
     Dosage: 480 MG, Q 3 WEEKS(SUBSEQUENT DOSE ON 21NOV2017,MOST RECENT DOSE PRIOR TO EVENT: 7MAY2019, 27MAY2019)
     Route: 042
     Dates: start: 20170306
  2. DEXAMETHASON [DEXAMETHASONE] [Concomitant]
     Active Substance: DEXAMETHASONE
     Dosage: UNK
     Dates: start: 20170829, end: 20180813
  3. MIRTAZAPIN [Concomitant]
     Active Substance: MIRTAZAPINE
     Dosage: UNK
     Dates: start: 20190315, end: 20190907
  4. FORTECORTIN [DEXAMETHASONE] [Concomitant]
     Active Substance: DEXAMETHASONE
     Dosage: UNK
     Dates: start: 20170829, end: 20180813
  5. TRITTICO [Concomitant]
     Active Substance: TRAZODONE HYDROCHLORIDE
     Dosage: UNK
  6. AMOXICILLIN/CLAVULANATE POTASSIUM [Concomitant]
     Active Substance: AMOXICILLIN\CLAVULANATE POTASSIUM
     Indication: VASCULAR DEVICE INFECTION
     Dosage: UNK
     Dates: start: 20180215, end: 20180215
  7. NOVALGIN (METAMIZOLE SODIUM) [Concomitant]
     Active Substance: METAMIZOLE SODIUM
     Dosage: UNK
     Dates: start: 20190509, end: 20190509
  8. MEXALEN [Concomitant]
     Active Substance: ACETAMINOPHEN
     Dosage: UNK
     Dates: start: 20170327, end: 20170327
  9. KYTRIL [Concomitant]
     Active Substance: GRANISETRON HYDROCHLORIDE
     Dosage: UNK
     Dates: start: 20171212, end: 20180813
  10. ULSAL [Concomitant]
     Active Substance: RANITIDINE HYDROCHLORIDE
     Indication: CHILLS
     Dosage: UNK
     Dates: start: 20170306, end: 20170306
  11. CORTISON [Concomitant]
     Active Substance: CORTISONE ACETATE
     Indication: RESPIRATORY TRACT INFECTION
     Dosage: UNK
     Dates: start: 20190615, end: 20190615
  12. TRASTUZUMAB. [Suspect]
     Active Substance: TRASTUZUMAB
     Dosage: 3.6 MG/M2, EVERY 3 WEEKS (RECEIVED ON 24/APR/2018, MOST RECENT DOSE PRIOR TO THE EVENT: 15/MAY/2018)
     Route: 042
     Dates: start: 20171212
  13. VINORELBINE [Suspect]
     Active Substance: VINORELBINE TARTRATE
     Indication: HER2 POSITIVE BREAST CANCER
     Dosage: 50 MG (SUBSEQUENT DOSE ON 30MAY2017, MOST RECENT DOSE PRIOR TO THE EVENT: 27JUN2017)
     Route: 048
     Dates: start: 20170306
  14. FORTECORTIN [DEXAMETHASONE] [Concomitant]
     Active Substance: DEXAMETHASONE
     Dosage: UNK
     Dates: start: 20190215, end: 20190907
  15. VENLAFAB [Concomitant]
     Active Substance: VENLAFAXINE HYDROCHLORIDE
     Dosage: UNK
     Dates: start: 20190315, end: 20190907
  16. DAFLON [DIOSMIN;HESPERIDIN] [Concomitant]
     Active Substance: DIOSMIN\HESPERIDIN
     Dosage: UNK
     Dates: end: 20190907
  17. FENISTIL [Concomitant]
     Active Substance: DIMETHINDENE
     Dosage: UNK
     Dates: start: 20170327, end: 20180313
  18. SUCRALFAT [Concomitant]
     Active Substance: SUCRALFATE
     Dosage: UNK
     Dates: end: 20190907
  19. NOVALGIN (METAMIZOLE SODIUM) [Concomitant]
     Active Substance: METAMIZOLE SODIUM
     Indication: HEPATIC PAIN
     Dosage: UNK
     Dates: start: 20190315, end: 20190907
  20. BUPRENORPHINE. [Concomitant]
     Active Substance: BUPRENORPHINE
  21. PARACODIN [DIHYDROCODEINE] [Concomitant]
     Dosage: UNK
     Dates: start: 20190510
  22. HYDAL [Concomitant]
     Active Substance: HYDROMORPHONE HYDROCHLORIDE
     Indication: BACK PAIN
     Dosage: UNK
     Dates: start: 20180403, end: 20180628
  23. HYDAL [Concomitant]
     Active Substance: HYDROMORPHONE HYDROCHLORIDE
     Dosage: UNK
     Dates: start: 20181227, end: 20190907
  24. SOLU-DACORTIN [Concomitant]
     Active Substance: PREDNISOLONE SODIUM SUCCINATE
     Indication: CHILLS
     Dates: start: 20170306, end: 20170306
  25. ULSAL [Concomitant]
     Active Substance: RANITIDINE HYDROCHLORIDE
     Dosage: UNK
     Dates: start: 20170327, end: 20180813
  26. BAMBEC [Concomitant]
     Active Substance: BAMBUTEROL HYDROCHLORIDE
     Dosage: UNK
  27. ZOLPIDEM [Concomitant]
     Active Substance: ZOLPIDEM TARTRATE
     Dosage: UNK
     Dates: start: 20190215, end: 20190315
  28. FORTECORTIN [DEXAMETHASONE] [Concomitant]
     Active Substance: DEXAMETHASONE
     Dosage: UNK
     Dates: start: 20180127, end: 20180313
  29. LOVENOX [Concomitant]
     Active Substance: ENOXAPARIN SODIUM
     Dosage: UNK
     Dates: start: 20190312, end: 20190315
  30. CONCOR COR [Concomitant]
     Active Substance: BISOPROLOL FUMARATE
     Dates: end: 20190907
  31. NOVALGIN (METAMIZOLE SODIUM) [Concomitant]
     Active Substance: METAMIZOLE SODIUM
     Indication: RESPIRATORY TRACT INFECTION
     Dosage: UNK
     Dates: start: 20171212, end: 20190907
  32. NOVALGIN (METAMIZOLE SODIUM) [Concomitant]
     Active Substance: METAMIZOLE SODIUM
     Dosage: UNK
     Dates: start: 20190615, end: 20190615
  33. LIXIANA [Concomitant]
     Active Substance: EDOXABAN TOSYLATE
     Indication: PULMONARY EMBOLISM
     Dosage: UNK
     Dates: start: 20190315, end: 20190907
  34. TRASTUZUMAB EMTANSINE [Suspect]
     Active Substance: ADO-TRASTUZUMAB EMTANSINE
     Indication: HER2 POSITIVE BREAST CANCER
     Dosage: 3.6 MG/M2, EVERY 3 WEEKS(SUBSEQUENT DOSE 24APR2018,  MOST RECENT DOSE PRIOR TO THE EVENT: 15MAY2018)
     Route: 042
     Dates: start: 20171212
  35. LOVENOX [Concomitant]
     Active Substance: ENOXAPARIN SODIUM
     Dosage: UNK
     Dates: start: 20180126, end: 20180208
  36. LYRICA [Concomitant]
     Active Substance: PREGABALIN
     Indication: BACK PAIN
     Dosage: UNK
     Dates: start: 20181227, end: 20190226
  37. PARACODIN [DIHYDROCODEINE] [Concomitant]
     Indication: COUGH
     Dosage: UNK
     Dates: start: 20171212, end: 20180115
  38. HYDAL [Concomitant]
     Active Substance: HYDROMORPHONE HYDROCHLORIDE
     Dosage: UNK
     Dates: start: 20180628, end: 20190226
  39. AUGMENTIN [Concomitant]
     Active Substance: AMOXICILLIN\CLAVULANATE POTASSIUM
     Indication: RESPIRATORY TRACT INFECTION
     Dosage: UNK
     Dates: start: 20190509, end: 20190516
  40. TEMESTA [LORAZEPAM] [Concomitant]
     Active Substance: LORAZEPAM
     Dosage: UNK
     Dates: start: 20190226
  41. FENISTIL [Concomitant]
     Active Substance: DIMETHINDENE
     Indication: CHILLS
     Dosage: UNK
     Dates: start: 20170306, end: 20170306
  42. PANTOLOC [PANTOPRAZOLE] [Concomitant]
     Active Substance: PANTOPRAZOLE SODIUM
     Dosage: UNK
     Dates: start: 20170302
  43. ZYRTEC [Concomitant]
     Active Substance: CETIRIZINE HYDROCHLORIDE
     Indication: PRURITUS
     Dosage: UNK
     Dates: start: 20170327, end: 20171215
  44. KALIORAL [CITRIC ACID;POTASSIUM BICARBONATE;POTASSIUM CITRATE] [Concomitant]
  45. EMEND [Concomitant]
     Active Substance: APREPITANT
     Dosage: UNK
     Dates: start: 20180127, end: 20180815
  46. PERTUZUMAB. [Suspect]
     Active Substance: PERTUZUMAB
     Indication: HER2 POSITIVE BREAST CANCER
     Dosage: 420 MG, EVERY 3 WEEKS (SUBSEQUENT DOSE ON 21NOV2017)
     Route: 042
     Dates: start: 20170306
  47. CAPECITABINE. [Suspect]
     Active Substance: CAPECITABINE
     Indication: HER2 POSITIVE BREAST CANCER
     Dosage: 3500 MG, ONCE A DAY (SUBSEQUENT DOSE ON 10SEP2018, MOST RECENT DOSE PRIOR TO THE EVENT: 27MAY2019)
     Route: 048
     Dates: start: 20180904
  48. DOXYCYCLIN [DOXYCYCLINE] [Concomitant]
     Active Substance: DOXYCYCLINE
     Indication: RESPIRATORY TRACT INFECTION
     Dosage: UNK
     Dates: start: 20190502, end: 20190509
  49. PASPERTIN [METOCLOPRAMIDE HYDROCHLORIDE] [Concomitant]
     Active Substance: METOCLOPRAMIDE HYDROCHLORIDE
     Dosage: UNK
     Dates: start: 20171212, end: 20190907
  50. NOVALGIN (METAMIZOLE SODIUM) [Concomitant]
     Active Substance: METAMIZOLE SODIUM
     Indication: BACK PAIN
     Dosage: UNK
     Dates: start: 20170327, end: 20191003
  51. LASIX [Concomitant]
     Active Substance: FUROSEMIDE
     Dosage: UNK
     Dates: end: 20190907
  52. LAEVOLAC [Concomitant]
     Active Substance: LACTULOSE
     Dosage: UNK
     Dates: start: 20171212, end: 20190907

REACTIONS (2)
  - Dyspnoea [Not Recovered/Not Resolved]
  - Respiratory tract infection [Recovered/Resolved]

NARRATIVE: CASE EVENT DATE: 20190415
